FAERS Safety Report 24103181 (Version 1)
Quarter: 2024Q3

REPORT INFORMATION
  Report Type: Report from Study
  Country: BG (occurrence: None)
  Receive Date: 20240717
  Receipt Date: 20240717
  Transmission Date: 20241016
  Serious: Yes (Other)
  Sender: ASTRAZENECA
  Company Number: 2019SF11572

PATIENT
  Age: 44 Year
  Sex: Male

DRUGS (2)
  1. GEFITINIB [Suspect]
     Active Substance: GEFITINIB
     Route: 048
     Dates: start: 20171216
  2. OSIMERTINIB [Suspect]
     Active Substance: OSIMERTINIB
     Route: 048
     Dates: start: 20190206

REACTIONS (8)
  - Atrial flutter [Unknown]
  - Hypotension [Unknown]
  - Metastases to central nervous system [Unknown]
  - Malignant neoplasm progression [Unknown]
  - Bone lesion [Unknown]
  - Dyspnoea [Unknown]
  - Fatigue [Unknown]
  - Visual impairment [Unknown]
